FAERS Safety Report 13336257 (Version 1)
Quarter: 2017Q1

REPORT INFORMATION
  Report Type: Spontaneous
  Country: US (occurrence: US)
  Receive Date: 20170314
  Receipt Date: 20170314
  Transmission Date: 20170428
  Serious: Yes (Hospitalization)
  Sender: FDA-Public Use
  Company Number: US-ALLERGAN-1709577US

PATIENT
  Age: 40 Year
  Sex: Male
  Weight: 63.49 kg

DRUGS (1)
  1. RESTASIS [Suspect]
     Active Substance: CYCLOSPORINE
     Indication: DRY EYE
     Dosage: 1 GTT, Q12H
     Route: 047
     Dates: start: 20170219, end: 20170301

REACTIONS (9)
  - Head injury [Recovered/Resolved]
  - Tremor [Not Recovered/Not Resolved]
  - Contusion [Not Recovered/Not Resolved]
  - Swelling face [Unknown]
  - Generalised tonic-clonic seizure [Not Recovered/Not Resolved]
  - Fall [Recovered/Resolved]
  - Dyspnoea [Recovered/Resolved]
  - Swollen tongue [Unknown]
  - Anoxia [Unknown]

NARRATIVE: CASE EVENT DATE: 20170301
